FAERS Safety Report 8978890 (Version 2)
Quarter: 2013Q1

REPORT INFORMATION
  Report Type: Spontaneous
  Country: IN (occurrence: IN)
  Receive Date: 20121221
  Receipt Date: 20130225
  Transmission Date: 20140127
  Serious: Yes (Other)
  Sender: FDA-Public Use
  Company Number: PHHY2012IN117075

PATIENT
  Sex: 0

DRUGS (8)
  1. TACROLIMUS [Suspect]
     Route: 064
  2. NIFEDIPINE [Suspect]
     Route: 064
  3. PREDNISOLONE [Suspect]
     Dosage: UNK
     Route: 064
  4. PANTOPRAZOLE [Suspect]
     Route: 064
  5. GLYCERYL TRINITRATE [Suspect]
     Route: 064
  6. ONDANSETRON [Suspect]
     Route: 064
  7. RANITIDINE [Suspect]
     Route: 064
  8. BUPIVACAINE [Suspect]

REACTIONS (2)
  - Low birth weight baby [Unknown]
  - Foetal exposure during pregnancy [Unknown]
